FAERS Safety Report 7427059 (Version 2)
Quarter: 2025Q4

REPORT INFORMATION
  Report Type: Spontaneous
  Country: EU (occurrence: EU)
  Receive Date: 20100621
  Receipt Date: 20251117
  Transmission Date: 20260118
  Serious: Yes (Hospitalization, Other)
  Sender: NOVARTIS
  Company Number: PHHY2010IT36709

PATIENT
  Age: 59 Year
  Sex: Male

DRUGS (6)
  1. CYCLOSPORINE [Suspect]
     Active Substance: CYCLOSPORINE
     Indication: Renal transplant
     Dosage: UNK
     Route: 048
  2. MYCOPHENOLIC ACID [Suspect]
     Active Substance: MYCOPHENOLIC ACID
     Indication: Renal transplant
     Dosage: UNK
     Route: 065
  3. TICLOPIDINE [Suspect]
     Active Substance: TICLOPIDINE
     Indication: Renal transplant
     Dosage: UNK
     Route: 065
  4. MESALAMINE [Suspect]
     Active Substance: MESALAMINE
     Indication: Renal transplant
     Dosage: UNK
     Route: 065
  5. ASPIRIN [Concomitant]
     Active Substance: ASPIRIN
     Indication: Product used for unknown indication
     Dosage: UNK
     Route: 065
  6. ASPIRIN [Concomitant]
     Active Substance: ASPIRIN
     Dosage: UNK
     Route: 065

REACTIONS (18)
  - Thrombotic microangiopathy [Recovered/Resolved]
  - Mucosal erosion [Recovered/Resolved]
  - Soft tissue injury [Recovered/Resolved]
  - Gastric mucosal lesion [Recovered/Resolved]
  - Ischaemia [Recovered/Resolved]
  - Necrosis [Recovered/Resolved]
  - Prothrombin level decreased [Recovered/Resolved]
  - Anaemia [Recovered/Resolved]
  - Blood lactate dehydrogenase increased [Recovered/Resolved]
  - Blood iron decreased [Recovered/Resolved]
  - Anisocytosis [Recovered/Resolved]
  - Atrial fibrillation [Unknown]
  - Abdominal pain [Recovered/Resolved]
  - Diarrhoea haemorrhagic [Recovered/Resolved]
  - Scar [Not Recovered/Not Resolved]
  - Asthenia [Recovered/Resolved]
  - Epstein-Barr virus infection [Unknown]
  - Pyrexia [Recovered/Resolved]
